FAERS Safety Report 5551264-2 (Version None)
Quarter: 2007Q4

REPORT INFORMATION
  Report Type: 
  Country: None (occurrence: None)
  Receive Date: 20071128
  Receipt Date: 20061012
  Transmission Date: 20080405
  Serious: Yes (Other)
  Sender: FDA-Public Use
  Company Number: 2006088938

PATIENT
  Age: 52 Year
  Sex: Female
  Weight: 66.6788 kg

DRUGS (2)
  1. LIPITOR [Suspect]
     Indication: HYPERLIPIDAEMIA
     Dosage: 20 MG (20 MG, 1 IN1 D)
     Dates: start: 20060421
  2. TAMOXIFEN CITRATE [Concomitant]

REACTIONS (1)
  - GLAUCOMA [None]
